FAERS Safety Report 9020283 (Version 1)
Quarter: 2013Q1

REPORT INFORMATION
  Report Type: Spontaneous
  Country: None (occurrence: US)
  Receive Date: 20130119
  Receipt Date: 20130119
  Transmission Date: 20140127
  Serious: No
  Sender: FDA-Public Use
  Company Number: US-ALLERGAN-1209465US

PATIENT
  Sex: Female

DRUGS (2)
  1. BOTOX COSMETIC [Suspect]
     Indication: SKIN WRINKLING
     Dosage: UNK
     Route: 030
     Dates: start: 20120606, end: 20120606
  2. BOTOX COSMETIC [Suspect]
     Dosage: UNK
     Route: 030
     Dates: start: 20120606, end: 20120606

REACTIONS (5)
  - Eye contusion [Unknown]
  - Eyelid ptosis [Unknown]
  - Abnormal sensation in eye [Unknown]
  - Extraocular muscle paresis [Unknown]
  - Visual acuity reduced [Unknown]
